FAERS Safety Report 19310464 (Version 2)
Quarter: 2021Q2

REPORT INFORMATION
  Report Type: Spontaneous
  Country: JP (occurrence: JP)
  Receive Date: 20210526
  Receipt Date: 20210616
  Transmission Date: 20210717
  Serious: Yes (Hospitalization, Other)
  Sender: FDA-Public Use
  Company Number: JP-BRACCO-2021JP02145

PATIENT
  Age: 80 Year
  Sex: Male

DRUGS (5)
  1. IOPAMIRON [Suspect]
     Active Substance: IOPAMIDOL
     Indication: ANGIOCARDIOGRAM
     Dosage: 230 ML, ONCE
     Dates: start: 20210410, end: 20210410
  2. DIPRIVAN [Concomitant]
     Active Substance: PROPOFOL
     Indication: SEDATION
     Dosage: 30 ML, QD
     Dates: start: 20210422, end: 20210422
  3. CLOPIDOGREL [Concomitant]
     Active Substance: CLOPIDOGREL BISULFATE
     Indication: CORONARY ARTERIAL STENT INSERTION
     Dosage: UNK
     Route: 048
     Dates: start: 20210410
  4. IOPAMIRON [Suspect]
     Active Substance: IOPAMIDOL
     Indication: ANGIOCARDIOGRAM
     Dosage: 165 ML
     Route: 022
     Dates: start: 20210422, end: 20210422
  5. DIPRIVAN [Concomitant]
     Active Substance: PROPOFOL
     Indication: SEDATION
     Dosage: 30 ML, QD
     Dates: start: 20210410, end: 20210410

REACTIONS (1)
  - Drug-induced liver injury [Recovered/Resolved]

NARRATIVE: CASE EVENT DATE: 20210423
